FAERS Safety Report 23417154 (Version 1)
Quarter: 2024Q1

REPORT INFORMATION
  Report Type: Spontaneous
  Country: US (occurrence: None)
  Receive Date: 20240117
  Receipt Date: 20240117
  Transmission Date: 20240409
  Serious: Yes (Hospitalization, Other)
  Sender: FDA-Public Use
  Company Number: None

PATIENT
  Age: 68 Year
  Sex: Male
  Weight: 117 kg

DRUGS (4)
  1. AZATHIOPRINE [Suspect]
     Active Substance: AZATHIOPRINE
     Indication: Renal transplant
     Dosage: FREQUENCY : DAILY;?
     Route: 048
     Dates: start: 20210121, end: 20240116
  2. FEBUXOSTAT [Suspect]
     Active Substance: FEBUXOSTAT
     Indication: Gout
     Dosage: FREQUENCY : DAILY;?
     Route: 048
     Dates: start: 20231005, end: 20240111
  3. TACROLIMUS [Concomitant]
     Active Substance: TACROLIMUS
     Dates: start: 20200902
  4. PREDNISONE [Concomitant]
     Active Substance: PREDNISONE
     Dates: start: 20200902

REACTIONS (5)
  - Anaemia [None]
  - White blood cell count decreased [None]
  - Platelet count decreased [None]
  - Gout [None]
  - Pancytopenia [None]

NARRATIVE: CASE EVENT DATE: 20231226
